FAERS Safety Report 9010477 (Version 1)
Quarter: 2013Q1

REPORT INFORMATION
  Report Type: Spontaneous
  Country: US (occurrence: US)
  Receive Date: 20130109
  Receipt Date: 20130109
  Transmission Date: 20140127
  Serious: Yes (Hospitalization)
  Sender: FDA-Public Use
  Company Number: US-ELI_LILLY_AND_COMPANY-US201301001046

PATIENT
  Sex: Male

DRUGS (3)
  1. ADCIRCA [Suspect]
  2. LETAIRIS [Concomitant]
     Indication: COR PULMONALE CHRONIC
     Dosage: 5 MG, BID
     Route: 048
     Dates: start: 20120717
  3. REVATIO [Concomitant]

REACTIONS (2)
  - Swollen tongue [Unknown]
  - Off label use [Unknown]
